FAERS Safety Report 16459723 (Version 1)
Quarter: 2019Q2

REPORT INFORMATION
  Report Type: Report from Study
  Country: PK (occurrence: PK)
  Receive Date: 20190620
  Receipt Date: 20190620
  Transmission Date: 20190711
  Serious: Yes (Death)
  Sender: FDA-Public Use
  Company Number: PHHY2019PK140597

PATIENT
  Age: 38 Year
  Sex: Female
  Weight: 63 kg

DRUGS (1)
  1. TASIGNA [Suspect]
     Active Substance: NILOTINIB
     Indication: CHRONIC MYELOID LEUKAEMIA
     Dosage: 600 MG, (2 CAPS IN THE MORNING 1 IN EVENING)
     Route: 048
     Dates: start: 20180306, end: 20181011

REACTIONS (1)
  - Death [Fatal]

NARRATIVE: CASE EVENT DATE: 20181114
